FAERS Safety Report 12305573 (Version 1)
Quarter: 2016Q2

REPORT INFORMATION
  Report Type: Other
  Country: BR (occurrence: BR)
  Receive Date: 20160426
  Receipt Date: 20160426
  Transmission Date: 20160815
  Serious: Yes (Death, Hospitalization, Other)
  Sender: FDA-Public Use
  Company Number: BR-ACTELION-A-CH2016-134970

PATIENT
  Age: 56 Year
  Sex: Male

DRUGS (9)
  1. CLOPIDOGREL [Concomitant]
     Active Substance: CLOPIDOGREL BISULFATE
     Dosage: 75 MG, QD
  2. AMIODARONE [Concomitant]
     Active Substance: AMIODARONE
     Dosage: 200 MG, QD
  3. TRACLEER [Suspect]
     Active Substance: BOSENTAN
     Indication: PULMONARY ARTERIAL HYPERTENSION
     Dosage: 125 MG, BID
     Route: 048
     Dates: start: 201109
  4. FUROSEMIDE. [Concomitant]
     Active Substance: FUROSEMIDE
     Dosage: 60 MG, QD
  5. OMEPRAZOL [Concomitant]
     Active Substance: OMEPRAZOLE
     Dosage: 40 MG, QD
  6. HYDROCHLOROTHIAZIDE. [Concomitant]
     Active Substance: HYDROCHLOROTHIAZIDE
     Dosage: 25 MG, QD
  7. WARFARIN [Concomitant]
     Active Substance: WARFARIN
     Dosage: 2.5 MG, UNK
  8. SILDENAFIL. [Concomitant]
     Active Substance: SILDENAFIL
     Dosage: 40 MG, TID
     Dates: start: 20071010
  9. SPIRONOLACTONE. [Concomitant]
     Active Substance: SPIRONOLACTONE
     Dosage: 25 MG, QD

REACTIONS (21)
  - Cardiac failure congestive [Fatal]
  - Disease progression [Fatal]
  - Dyspnoea [Fatal]
  - Cyanosis [Fatal]
  - Oedema [Fatal]
  - Cardiac arrest [Fatal]
  - Productive cough [Unknown]
  - Right-to-left cardiac shunt [Fatal]
  - Pulseless electrical activity [Fatal]
  - Chest pain [Fatal]
  - Influenza [Unknown]
  - Rhinorrhoea [Unknown]
  - Cardiogenic shock [Fatal]
  - Secretion discharge [Unknown]
  - Ascites [Fatal]
  - Pulmonary artery thrombosis [Fatal]
  - Lung adenocarcinoma [Unknown]
  - Phlebotomy [Unknown]
  - Waist circumference increased [Fatal]
  - Oedema peripheral [Fatal]
  - Urine output decreased [Fatal]

NARRATIVE: CASE EVENT DATE: 2013
